FAERS Safety Report 17112750 (Version 1)
Quarter: 2019Q4

REPORT INFORMATION
  Report Type: Spontaneous
  Country: FR (occurrence: FR)
  Receive Date: 20191204
  Receipt Date: 20191204
  Transmission Date: 20200122
  Serious: Yes (Death)
  Sender: FDA-Public Use
  Company Number: FR-MYLANLABS-2019M1118440

PATIENT
  Age: 70 Year
  Sex: Female
  Weight: 58 kg

DRUGS (2)
  1. CISPLATIN. [Suspect]
     Active Substance: CISPLATIN
     Indication: LUNG ADENOCARCINOMA
     Dosage: 124.5 MILLIGRAM, QD
     Route: 042
     Dates: start: 20190204, end: 20190204
  2. ALIMTA [Suspect]
     Active Substance: PEMETREXED DISODIUM
     Indication: LUNG ADENOCARCINOMA
     Dosage: 825 MILLIGRAM, QD
     Route: 042
     Dates: start: 20190204, end: 20190204

REACTIONS (7)
  - Thrombocytopenia [Fatal]
  - Asthenia [Fatal]
  - Vomiting [Fatal]
  - Diarrhoea [Fatal]
  - Neutropenia [Fatal]
  - Sepsis [Fatal]
  - Acute kidney injury [Fatal]

NARRATIVE: CASE EVENT DATE: 20190213
